FAERS Safety Report 4964669-5 (Version None)
Quarter: 2006Q2

REPORT INFORMATION
  Report Type: 
  Country: None (occurrence: None)
  Receive Date: 20060406
  Receipt Date: 20060220
  Transmission Date: 20061013
  Serious: Yes (Hospitalization, Disabling)
  Sender: FDA-Public Use
  Company Number: US-MERCK-0602USA04952

PATIENT
  Age: 47 Year
  Sex: Male
  Weight: 85 kg

DRUGS (12)
  1. VIOXX [Suspect]
     Indication: RHEUMATOID ARTHRITIS
     Route: 048
     Dates: start: 20010101, end: 20040901
  2. VIOXX [Suspect]
     Route: 048
  3. MS CONTIN [Concomitant]
     Route: 065
  4. EFFEXOR [Concomitant]
     Route: 065
  5. ACIPHEX [Concomitant]
     Route: 065
  6. METHOTREXATE [Concomitant]
     Route: 048
  7. LOTENSIN [Concomitant]
     Route: 065
  8. VALIUM [Concomitant]
     Route: 065
  9. VICODIN [Concomitant]
     Route: 065
  10. PREDNISONE [Concomitant]
     Route: 065
  11. FOLIC ACID [Concomitant]
     Route: 065
  12. ZYDONE [Concomitant]
     Route: 065

REACTIONS (13)
  - ACUTE CORONARY SYNDROME [None]
  - ARTHROPATHY [None]
  - CHEST PAIN [None]
  - CORONARY ARTERY DISEASE [None]
  - DEPRESSION [None]
  - FLANK PAIN [None]
  - IMPAIRED FASTING GLUCOSE [None]
  - MACROCYTOSIS [None]
  - MYOCARDIAL INFARCTION [None]
  - OSTEOPOROSIS [None]
  - PAIN IN EXTREMITY [None]
  - PNEUMONIA [None]
  - URTICARIA [None]
